FAERS Safety Report 12077873 (Version 2)
Quarter: 2016Q1

REPORT INFORMATION
  Report Type: Spontaneous
  Country: IL (occurrence: IL)
  Receive Date: 20160215
  Receipt Date: 20160223
  Transmission Date: 20160526
  Serious: Yes (Hospitalization, Other)
  Sender: FDA-Public Use
  Company Number: PHHY2016IL007865

PATIENT
  Age: 66 Year
  Sex: Male

DRUGS (9)
  1. LEPONEX [Suspect]
     Active Substance: CLOZAPINE
     Dosage: 200 MG
     Route: 065
     Dates: start: 201511
  2. ELATROL [Concomitant]
     Indication: PRODUCT USED FOR UNKNOWN INDICATION
     Route: 065
  3. LEPONEX [Suspect]
     Active Substance: CLOZAPINE
     Indication: HALLUCINATION
     Dosage: 25 MG, UNK
     Route: 065
     Dates: start: 20151007
  4. LEPONEX [Suspect]
     Active Substance: CLOZAPINE
     Dosage: 250 MG, BID
     Route: 065
     Dates: end: 20160106
  5. ELTROXIN [Concomitant]
     Active Substance: LEVOTHYROXINE
     Indication: PRODUCT USED FOR UNKNOWN INDICATION
     Route: 065
  6. STALEVO [Suspect]
     Active Substance: CARBIDOPA\ENTACAPONE\LEVODOPA
     Indication: PRODUCT USED FOR UNKNOWN INDICATION
     Route: 065
  7. GUTRON [Concomitant]
     Active Substance: MIDODRINE
     Indication: PRODUCT USED FOR UNKNOWN INDICATION
     Route: 065
  8. CARTIA XT [Concomitant]
     Active Substance: DILTIAZEM HYDROCHLORIDE
     Indication: PRODUCT USED FOR UNKNOWN INDICATION
     Route: 065
  9. LEVOPAR [Concomitant]
     Active Substance: BENSERAZIDE\LEVODOPA
     Indication: PRODUCT USED FOR UNKNOWN INDICATION
     Route: 065

REACTIONS (6)
  - H1N1 influenza [Recovering/Resolving]
  - Product use issue [Unknown]
  - Leukopenia [Recovered/Resolved]
  - Pneumonia [Recovering/Resolving]
  - Leukaemia [Recovering/Resolving]
  - Q fever [Recovering/Resolving]
